FAERS Safety Report 7394647-0 (Version None)
Quarter: 2011Q2

REPORT INFORMATION
  Report Type: 
  Country: None (occurrence: None)
  Receive Date: 20110405
  Receipt Date: 20110328
  Transmission Date: 20111010
  Serious: Yes (Hospitalization, Other)
  Sender: FDA-Public Use
  Company Number: US-AMGEN-USASP2011011245

PATIENT
  Age: 81 Year
  Sex: Female

DRUGS (1)
  1. ENBREL [Suspect]
     Indication: RHEUMATOID ARTHRITIS
     Dosage: 50 MG, QWK
     Dates: start: 20110208

REACTIONS (12)
  - FALL [None]
  - OESOPHAGEAL FOOD IMPACTION [None]
  - FACIAL BONES FRACTURE [None]
  - HEAD INJURY [None]
  - LOSS OF CONSCIOUSNESS [None]
  - LIP INJURY [None]
  - GASTROOESOPHAGEAL REFLUX DISEASE [None]
  - LIP PAIN [None]
  - DIZZINESS [None]
  - IMPAIRED HEALING [None]
  - WEIGHT DECREASED [None]
  - BACK INJURY [None]
